FAERS Safety Report 12976856 (Version 1)
Quarter: 2016Q4

REPORT INFORMATION
  Report Type: Other
  Country: SG (occurrence: SG)
  Receive Date: 20161128
  Receipt Date: 20161128
  Transmission Date: 20170207
  Serious: Yes (Hospitalization)
  Sender: FDA-Public Use
  Company Number: SG-JUBILANT GENERICS LIMITED-1060077

PATIENT
  Age: 68 Year
  Sex: Female

DRUGS (3)
  1. DONEPEZIL. [Concomitant]
     Active Substance: DONEPEZIL
  2. FLUVOXAMINE [Concomitant]
     Active Substance: FLUVOXAMINE
  3. QUETIAPINE FUMARATE. [Suspect]
     Active Substance: QUETIAPINE FUMARATE

REACTIONS (1)
  - Cutaneous vasculitis [Recovered/Resolved]

NARRATIVE: CASE EVENT DATE: 20161115
